FAERS Safety Report 24019476 (Version 1)
Quarter: 2024Q2

REPORT INFORMATION
  Report Type: Spontaneous
  Country: US (occurrence: US)
  Receive Date: 20240627
  Receipt Date: 20240627
  Transmission Date: 20240716
  Serious: Yes (Life-Threatening, Hospitalization, Other)
  Sender: FDA-Public Use
  Company Number: US-PFIZER INC-PV202400077780

PATIENT
  Age: 57 Year
  Sex: Female

DRUGS (10)
  1. SUCCINYLCHOLINE CHLORIDE [Suspect]
     Active Substance: SUCCINYLCHOLINE CHLORIDE
     Indication: Anaesthesia
     Dosage: 40 MG
  2. LIDOCAINE HYDROCHLORIDE [Suspect]
     Active Substance: LIDOCAINE HYDROCHLORIDE
     Indication: Local anaesthesia
     Dosage: 160 MG, INTRATRACHEAL SPRAY
     Route: 039
  3. FENTANYL CITRATE [Suspect]
     Active Substance: FENTANYL CITRATE
     Indication: Postoperative analgesia
     Dosage: 0.05 MG
  4. FENTANYL CITRATE [Suspect]
     Active Substance: FENTANYL CITRATE
     Indication: Anaesthesia
  5. THIOPENTAL [Suspect]
     Active Substance: THIOPENTAL
     Indication: Anaesthesia
     Dosage: 200 MG
     Route: 042
  6. DIAZEPAM [Suspect]
     Active Substance: DIAZEPAM
     Indication: Anaesthesia
     Dosage: 10 MG
     Route: 030
  7. HALOTHANE [Suspect]
     Active Substance: HALOTHANE
     Indication: Anaesthesia
     Dosage: UNK, (1%) IN N2O-O2, (3:2 L/MIN)
  8. ATROPINE [Concomitant]
     Active Substance: ATROPINE\ATROPINE SULFATE
     Dosage: 0.5 MG
     Route: 030
  9. METHYLPREDNISOLONE [Concomitant]
     Active Substance: METHYLPREDNISOLONE
     Dosage: 100 MG
     Route: 030
  10. DIPHENYLHYDANTOIN SODIUM [Concomitant]
     Dosage: 250 MG; 1 HOUR BEFORE THE SCHEDULED BIFRONTAL CRANIOTOMY
     Route: 030

REACTIONS (1)
  - Drug hypersensitivity [Recovering/Resolving]
